FAERS Safety Report 7908691-5 (Version None)
Quarter: 2011Q4

REPORT INFORMATION
  Report Type: 
  Country: None (occurrence: None)
  Receive Date: 20111111
  Receipt Date: 20111109
  Transmission Date: 20120403
  Serious: Yes (Death)
  Sender: FDA-Public Use
  Company Number: PHFR2011GB006436

PATIENT
  Age: 67 Year
  Sex: Male
  Weight: 86 kg

DRUGS (6)
  1. ATENOLOL [Concomitant]
     Dosage: 20 MG, QD
  2. LEVOTHYROXINE SODIUM [Concomitant]
  3. VALPROIC ACID [Concomitant]
     Dosage: 1200 MG, QD
  4. RABEPRAZOLE SODIUM [Concomitant]
     Dosage: 20 MG, QD
  5. CLOZAPINE [Suspect]
  6. CLONAZEPAM [Concomitant]
     Dosage: 0.5 MG, QD

REACTIONS (1)
  - PERICARDITIS [None]
